FAERS Safety Report 5068702-4 (Version None)
Quarter: 2006Q3

REPORT INFORMATION
  Report Type: 
  Country: None (occurrence: None)
  Receive Date: 20060802
  Receipt Date: 20060221
  Transmission Date: 20061208
  Serious: No
  Sender: FDA-Public Use
  Company Number: US-BRISTOL-MYERS SQUIBB COMPANY-13290150

PATIENT
  Age: 73 Year
  Sex: Male
  Weight: 81 kg

DRUGS (1)
  1. COUMADIN [Suspect]
     Dosage: STARTED 2 MONTHS AGO, DOSE WAS INCREASED TO 2.5 MG DAILY ABOUT 6 WEEKS AGO

REACTIONS (1)
  - WEIGHT INCREASED [None]
